FAERS Safety Report 10066539 (Version 2)
Quarter: 2014Q2

REPORT INFORMATION
  Report Type: Report from Study
  Country: US (occurrence: US)
  Receive Date: 20140408
  Receipt Date: 20140417
  Transmission Date: 20141212
  Serious: Yes (Hospitalization)
  Sender: FDA-Public Use
  Company Number: PHEH2014US006707

PATIENT
  Age: 21 Year
  Sex: Male
  Weight: 54.42 kg

DRUGS (12)
  1. TOBI PODHALER [Suspect]
     Indication: CYSTIC FIBROSIS
     Dosage: 112 MG, BID
     Route: 055
  2. TOBI PODHALER [Suspect]
     Dosage: 112 MG, BID
     Route: 055
     Dates: start: 20140312
  3. PULMOZYME [Concomitant]
     Dosage: UNK
  4. HYPERTONIC SALINE SOLUTION [Concomitant]
     Dosage: UNK
  5. ADVAIR [Concomitant]
     Dosage: UNK
  6. CREON [Concomitant]
     Dosage: UNK
  7. BACTRIM [Concomitant]
     Dosage: UNK
  8. AZITHROMYCIN [Concomitant]
     Dosage: UNK
  9. PRILOSEC [Concomitant]
     Dosage: UNK
  10. ZOFRAN [Concomitant]
     Dosage: UNK
  11. COLISTIN [Concomitant]
     Dosage: UNK
  12. FLONASE [Concomitant]
     Dosage: UNK

REACTIONS (4)
  - Cystic fibrosis [Recovering/Resolving]
  - Condition aggravated [Recovering/Resolving]
  - Weight abnormal [Recovering/Resolving]
  - Oropharyngeal pain [Recovering/Resolving]
